FAERS Safety Report 10925585 (Version 1)
Quarter: 2015Q1

REPORT INFORMATION
  Report Type: Spontaneous
  Country: US (occurrence: None)
  Receive Date: 20150316
  Receipt Date: 20150316
  Transmission Date: 20150721
  Serious: Yes (Life-Threatening, Hospitalization)
  Sender: FDA-Public Use
  Company Number: None

PATIENT
  Age: 49 Year
  Sex: Female
  Weight: 94 kg

DRUGS (2)
  1. EXPAREL [Suspect]
     Active Substance: BUPIVACAINE
     Indication: PAIN
     Dates: start: 20150310
  2. EXPAREL [Suspect]
     Active Substance: BUPIVACAINE
     Indication: NERVE BLOCK
     Dates: start: 20150310

REACTIONS (4)
  - Stridor [None]
  - Bronchospasm [None]
  - Dyspnoea [None]
  - Laryngeal oedema [None]

NARRATIVE: CASE EVENT DATE: 20150310
